FAERS Safety Report 7565887-2 (Version None)
Quarter: 2011Q2

REPORT INFORMATION
  Report Type: 
  Country: None (occurrence: None)
  Receive Date: 20110623
  Receipt Date: 20110616
  Transmission Date: 20111010
  Serious: No
  Sender: FDA-Public Use
  Company Number: US-PFIZER INC-2011132691

PATIENT
  Sex: Female
  Weight: 58.957 kg

DRUGS (6)
  1. LEXAPRO [Concomitant]
     Dosage: 15 MG, UNKNOWN
     Route: 048
  2. PRISTIQ [Suspect]
     Indication: MAJOR DEPRESSION
     Dosage: 50 MG, 1X/DAY
     Route: 048
     Dates: start: 20110101
  3. ALLEGRA D 24 HOUR [Suspect]
     Indication: HYPERSENSITIVITY
     Dosage: UNK
     Route: 048
  4. LEXAPRO [Concomitant]
     Indication: DEPRESSION
     Dosage: 20 MG, UNKNOWN
     Route: 048
  5. LEXAPRO [Concomitant]
     Dosage: 10 MG, UNKNOWN
     Route: 048
  6. LEXAPRO [Concomitant]
     Dosage: 5 MG, UNKNOWN
     Route: 048
     Dates: end: 20110601

REACTIONS (7)
  - DEPRESSION [None]
  - FEELING ABNORMAL [None]
  - EYE PRURITUS [None]
  - TABLET PHYSICAL ISSUE [None]
  - LACRIMATION INCREASED [None]
  - MEDICATION RESIDUE [None]
  - EMOTIONAL DISORDER [None]
